FAERS Safety Report 7954908-0 (Version None)
Quarter: 2011Q4

REPORT INFORMATION
  Report Type: 
  Country: None (occurrence: None)
  Receive Date: 20111202
  Receipt Date: 20111124
  Transmission Date: 20120403
  Serious: Yes (Hospitalization)
  Sender: FDA-Public Use
  Company Number: PH-JNJFOC-20111112145

PATIENT
  Sex: Female
  Weight: 2.63 kg

DRUGS (1)
  1. STELARA [Suspect]
     Indication: FOETAL EXPOSURE DURING PREGNANCY
     Route: 064
     Dates: start: 20100329, end: 20110103

REACTIONS (2)
  - PREMATURE DELIVERY [None]
  - BACTERIAL INFECTION [None]
